FAERS Safety Report 5608399-5 (Version None)
Quarter: 2008Q1

REPORT INFORMATION
  Report Type: 
  Country: None (occurrence: None)
  Receive Date: 20080130
  Receipt Date: 20080124
  Transmission Date: 20080703
  Serious: Yes (Hospitalization)
  Sender: FDA-Public Use
  Company Number: IT-ABBOTT-06P-083-0351202-00

PATIENT
  Sex: Female
  Weight: 52 kg

DRUGS (8)
  1. HUMIRA [Suspect]
     Indication: RHEUMATOID ARTHRITIS
     Route: 058
     Dates: start: 20070428
  2. HUMIRA [Suspect]
     Route: 058
     Dates: start: 20051219, end: 20060331
  3. HUMIRA [Suspect]
     Dates: start: 20060428
  4. CYCLOSPORINE [Concomitant]
     Indication: RHEUMATOID ARTHRITIS
     Dates: start: 19980311, end: 20060215
  5. CYCLOSPORINE [Concomitant]
     Dates: start: 20060215, end: 20060405
  6. CYCLOSPORINE [Concomitant]
     Dates: start: 20060405
  7. METHYLPREDNISOLONE [Concomitant]
     Indication: RHEUMATOID ARTHRITIS
     Dates: start: 19980311, end: 20060215
  8. METHYLPREDNISOLONE [Concomitant]
     Dates: start: 20060215

REACTIONS (4)
  - DRUG INEFFECTIVE [None]
  - FALL [None]
  - JOINT DISLOCATION [None]
  - UPPER LIMB FRACTURE [None]
